FAERS Safety Report 10388760 (Version 1)
Quarter: 2014Q1

REPORT INFORMATION
  Report Type: Spontaneous
  Country: US (occurrence: None)
  Receive Date: 20140306
  Receipt Date: 20140306
  Transmission Date: 20141002
  Serious: Yes (Hospitalization)
  Sender: FDA-Public Use
  Company Number: 163-21880-13123254

PATIENT
  Age: 70 Year
  Sex: Female

DRUGS (2)
  1. REVLIMID (LENALIDOMIDE) (10 MILLIGRAM, CAPSULES) [Suspect]
     Indication: MYELODYSPLASTIC SYNDROME
     Route: 048
     Dates: start: 20131009
  2. BLOOD (BLOOD RELATED PRODUCTS) [Concomitant]

REACTIONS (3)
  - Disorientation [None]
  - Pneumonia [None]
  - Asthenia [None]
